FAERS Safety Report 5080265-6 (Version None)
Quarter: 2006Q3

REPORT INFORMATION
  Report Type: 
  Country: None (occurrence: None)
  Receive Date: 20060810
  Receipt Date: 20060801
  Transmission Date: 20061208
  Serious: Yes (Other)
  Sender: FDA-Public Use
  Company Number: 2006095236

PATIENT
  Age: 76 Year
  Sex: Female
  Weight: 72.5755 kg

DRUGS (5)
  1. LIPITOR [Suspect]
     Indication: BLOOD CHOLESTEROL
     Dosage: 10 MG (10 MG, DAILY)
  2. ACCUPRIL [Concomitant]
  3. SPIRONOLACTONE [Concomitant]
  4. ARICEPT [Concomitant]
  5. NAMENDA [Concomitant]

REACTIONS (1)
  - DEMENTIA [None]
